FAERS Safety Report 5749825-0 (Version None)
Quarter: 2008Q2

REPORT INFORMATION
  Report Type: 
  Country: None (occurrence: None)
  Receive Date: 20080527
  Receipt Date: 20080521
  Transmission Date: 20081010
  Serious: Yes (Hospitalization, Other)
  Sender: FDA-Public Use
  Company Number: US-BAYER-200818485NA

PATIENT
  Age: 71 Year
  Sex: Female

DRUGS (10)
  1. MAGNEVIST [Suspect]
     Indication: NUCLEAR MAGNETIC RESONANCE IMAGING ABDOMINAL
     Dosage: TOTAL DAILY DOSE: 20 ML  UNIT DOSE: 20 ML
     Dates: start: 20080321, end: 20080321
  2. ESOMETROZAL [Concomitant]
     Dosage: AS USED: 40 MG
     Route: 048
  3. LACTULOSE [Concomitant]
     Dosage: AS USED: 20 G
     Route: 050
  4. METRONIDIZOLE [Concomitant]
     Dosage: AS USED: 500 MG
     Route: 048
  5. NADOLOL [Concomitant]
     Dosage: AS USED: 40 MG
     Route: 050
  6. PHENYTOIN [Concomitant]
     Dosage: TOTAL DAILY DOSE: 300 MG
     Route: 050
  7. SODIUM CHLORIDE [Concomitant]
  8. ISS REG [Concomitant]
     Route: 058
  9. FLU SHOT INACTIVATED [Concomitant]
  10. PNEU VACCINE [Concomitant]

REACTIONS (4)
  - BACK PAIN [None]
  - NAUSEA [None]
  - RESPIRATORY RATE DECREASED [None]
  - UNRESPONSIVE TO STIMULI [None]
